FAERS Safety Report 6402968-0 (Version None)
Quarter: 2009Q4

REPORT INFORMATION
  Report Type: 
  Country: None (occurrence: None)
  Receive Date: 20091016
  Receipt Date: 20091008
  Transmission Date: 20100525
  Serious: Yes (Other)
  Sender: FDA-Public Use
  Company Number: BR-BAYER-200920590LA

PATIENT
  Age: 54 Year
  Sex: Female

DRUGS (9)
  1. BETAFERON [Suspect]
     Indication: SECONDARY PROGRESSIVE MULTIPLE SCLEROSIS
     Dosage: BETAJECT
     Route: 058
     Dates: start: 20090814
  2. GABAPENTIN [Concomitant]
     Indication: NEURALGIA
     Dosage: 2 TABLETS
     Route: 048
     Dates: start: 20040101
  3. METADON [Concomitant]
     Indication: NEURALGIA
     Route: 048
     Dates: start: 20050101
  4. GLIFAGE 500 XF [Concomitant]
     Indication: DIABETES MELLITUS
     Dosage: 1 TABLET
     Route: 048
     Dates: start: 20040101
  5. AAS [Concomitant]
     Indication: PLATELET AGGREGATION INHIBITION
     Dosage: 1 TABLET
     Route: 048
     Dates: start: 20080101
  6. METOTREXATE [Concomitant]
     Indication: BEHCET'S SYNDROME
     Dosage: 4 TABLETS
     Route: 048
     Dates: start: 20040101
  7. FOLIC ACID [Concomitant]
     Indication: BEHCET'S SYNDROME
     Route: 048
     Dates: start: 20090901
  8. CYCLOPHOSPHAMIDE [Concomitant]
     Indication: BEHCET'S SYNDROME
     Dosage: EVERY 6 MONTHS
     Route: 048
     Dates: start: 20030101
  9. PARACETAMOL [Concomitant]
     Indication: PREMEDICATION
     Dosage: 1 TABLET BEFORE INJECTION
     Route: 048
     Dates: start: 20090801

REACTIONS (10)
  - CHILLS [None]
  - INFLUENZA LIKE ILLNESS [None]
  - INSOMNIA [None]
  - MALAISE [None]
  - MUSCLE RIGIDITY [None]
  - MYALGIA [None]
  - MYOSITIS [None]
  - PAIN [None]
  - PYREXIA [None]
  - RASH VESICULAR [None]
